FAERS Safety Report 24559198 (Version 3)
Quarter: 2024Q4

REPORT INFORMATION
  Report Type: Spontaneous
  Country: US (occurrence: US)
  Receive Date: 20241029
  Receipt Date: 20241119
  Transmission Date: 20250114
  Serious: No
  Sender: Haleon PLC
  Company Number: US-HALEON-2205256

PATIENT
  Sex: Female
  Weight: 61.235 kg

DRUGS (1)
  1. ALLI [Suspect]
     Active Substance: ORLISTAT
     Indication: Weight decreased
     Dosage: EXPIRATION DATE WAS REPORTED AS 2026-07
     Route: 048
     Dates: start: 20240831, end: 20241028

REACTIONS (6)
  - Gastrointestinal disorder [Recovered/Resolved]
  - Drug ineffective [Unknown]
  - Drug effect less than expected [Unknown]
  - Chest pain [Not Recovered/Not Resolved]
  - Dyspepsia [Not Recovered/Not Resolved]
  - Malaise [Recovered/Resolved]
